FAERS Safety Report 10920552 (Version 3)
Quarter: 2015Q2

REPORT INFORMATION
  Report Type: Report from Study
  Country: DK (occurrence: DK)
  Receive Date: 20150317
  Receipt Date: 20150527
  Transmission Date: 20150821
  Serious: Yes (Life-Threatening)
  Sender: FDA-Public Use
  Company Number: PHHO2015DK003680

PATIENT
  Age: 64 Year
  Sex: Male
  Weight: 76.8 kg

DRUGS (3)
  1. AIN457 [Suspect]
     Active Substance: SECUKINUMAB
     Indication: NAIL PSORIASIS
     Dosage: 300 MG, UNK
     Route: 058
     Dates: start: 20131120, end: 20150305
  2. ALENDRONATE [Concomitant]
     Active Substance: ALENDRONATE SODIUM
     Dosage: 70 MG, QW
  3. SERTRALIN 1 A PHARMA [Concomitant]
     Indication: BIPOLAR I DISORDER
     Dosage: 25 MG, QW

REACTIONS (1)
  - Tonsil cancer [Not Recovered/Not Resolved]

NARRATIVE: CASE EVENT DATE: 20150305
